FAERS Safety Report 23742675 (Version 2)
Quarter: 2024Q3

REPORT INFORMATION
  Report Type: Report from Study
  Country: IT (occurrence: IT)
  Receive Date: 20240415
  Receipt Date: 20240715
  Transmission Date: 20241017
  Serious: Yes (Hospitalization, Other)
  Sender: TEVA
  Company Number: None

PATIENT
  Age: 16 Year
  Sex: Female
  Weight: 66 kg

DRUGS (3)
  1. VINCRISTINE [Suspect]
     Active Substance: VINCRISTINE
     Indication: Hodgkin^s disease
     Dosage: 2 MG/DAY ON 23/02 AND 01/03/2024, VINCRISTINA TEVA ITALY
     Route: 042
     Dates: start: 20240223, end: 20240301
  2. ETOPOSIDE [Suspect]
     Active Substance: ETOPOSIDE
     Indication: Hodgkin^s disease
     Dosage: 217 MG/DAY , ETOPOSIDE SANDOZ
     Route: 042
     Dates: start: 20240223, end: 20240227
  3. DOXORUBICIN HYDROCHLORIDE [Suspect]
     Active Substance: DOXORUBICIN HYDROCHLORIDE
     Indication: Hodgkin^s disease
     Dosage: DOXORUBICINA ACCORD HEALTHCARE ITALY
     Route: 042
     Dates: start: 20240223, end: 20240301

REACTIONS (4)
  - Abdominal pain [Recovered/Resolved]
  - Stomatitis [Recovering/Resolving]
  - Pancytopenia [Recovered/Resolved]
  - Febrile neutropenia [Recovering/Resolving]

NARRATIVE: CASE EVENT DATE: 20240305
